FAERS Safety Report 12972458 (Version 1)
Quarter: 2016Q4

REPORT INFORMATION
  Report Type: Report from Study
  Country: KR (occurrence: KR)
  Receive Date: 20161124
  Receipt Date: 20161124
  Transmission Date: 20170207
  Serious: No
  Sender: FDA-Public Use
  Company Number: KR-PROSTRAKAN-2016-KR-0188

PATIENT

DRUGS (12)
  1. DEXAMETHASONE. [Concomitant]
     Active Substance: DEXAMETHASONE
     Indication: PRODUCT USED FOR UNKNOWN INDICATION
     Dosage: UNKNOWN
     Route: 065
     Dates: start: 20111014, end: 20111016
  2. MEGESTROL [Concomitant]
     Active Substance: MEGESTROL
     Indication: ASTHENIA
     Dosage: UNKNOWN
     Route: 065
     Dates: start: 20111024, end: 20111028
  3. GRANISETRON [Suspect]
     Active Substance: GRANISETRON
     Indication: PROPHYLAXIS OF NAUSEA AND VOMITING
     Dosage: UNKNOWN
     Route: 062
     Dates: start: 20111129, end: 20111201
  4. BIOFLOR [Concomitant]
     Indication: ASTHENIA
     Dosage: UNKNOWN
     Route: 065
     Dates: start: 20111024, end: 20111029
  5. LANSTON [Concomitant]
     Active Substance: LANSOPRAZOLE
     Indication: PROPHYLAXIS AGAINST GASTROINTESTINAL ULCER
  6. METOCLOPRAMIDE. [Concomitant]
     Active Substance: METOCLOPRAMIDE
     Indication: PRODUCT USED FOR UNKNOWN INDICATION
     Dosage: UNKNOWN
     Route: 065
     Dates: start: 20111014, end: 20111020
  7. ADRIAMYCIN [Concomitant]
     Active Substance: DOXORUBICIN HYDROCHLORIDE
     Indication: PRODUCT USED FOR UNKNOWN INDICATION
     Dosage: UNKNOWN
     Route: 065
     Dates: start: 20111014, end: 20111014
  8. CAROL-F [Concomitant]
     Indication: ASTHENIA
     Dosage: UNKNOWN
     Route: 065
     Dates: start: 20111024, end: 20111028
  9. EMEND [Concomitant]
     Active Substance: APREPITANT
     Indication: PRODUCT USED FOR UNKNOWN INDICATION
     Dosage: UNKNOWN
     Route: 065
     Dates: start: 20111014, end: 20111014
  10. LORAVAN [Concomitant]
     Indication: PROPHYLAXIS
     Dosage: UNKNOWN
     Route: 065
     Dates: start: 20111014, end: 20111205
  11. KYTRIL [Concomitant]
     Active Substance: GRANISETRON HYDROCHLORIDE
     Indication: PRODUCT USED FOR UNKNOWN INDICATION
     Dosage: UNKNOWN
     Route: 065
     Dates: start: 20111109, end: 20111109
  12. ENDOXAN [Concomitant]
     Active Substance: CYCLOPHOSPHAMIDE
     Indication: PRODUCT USED FOR UNKNOWN INDICATION
     Dosage: UNKNOWN
     Route: 065
     Dates: start: 20111014, end: 20111014

REACTIONS (2)
  - Asthenia [Recovered/Resolved]
  - Decreased appetite [Recovered/Resolved]

NARRATIVE: CASE EVENT DATE: 20111014
